FAERS Safety Report 13560398 (Version 1)
Quarter: 2017Q2

REPORT INFORMATION
  Report Type: Spontaneous
  Country: US (occurrence: US)
  Receive Date: 20170518
  Receipt Date: 20170518
  Transmission Date: 20170830
  Serious: Yes (Other)
  Sender: FDA-Public Use
  Company Number: PHEH2017US014267

PATIENT
  Age: 70 Year
  Sex: Male

DRUGS (1)
  1. ILARIS [Suspect]
     Active Substance: CANAKINUMAB
     Indication: SCHNITZLER^S SYNDROME
     Route: 058

REACTIONS (4)
  - Cellulitis [Unknown]
  - Pneumonia [Unknown]
  - Infection [Recovered/Resolved]
  - Schnitzler^s syndrome [Unknown]
